FAERS Safety Report 5725912-8 (Version None)
Quarter: 2008Q2

REPORT INFORMATION
  Report Type: 
  Country: None (occurrence: None)
  Receive Date: 20080429
  Receipt Date: 20080414
  Transmission Date: 20081010
  Serious: Yes (Hospitalization, Other)
  Sender: FDA-Public Use
  Company Number: 47360

PATIENT
  Age: 65 Year
  Sex: Male

DRUGS (1)
  1. DOBUTAMINE INJ. USP 250MG/20ML - BEDFORD LABS, INC. [Suspect]
     Indication: CARDIAC FAILURE CONGESTIVE
     Dosage: 3UG/KG/MIN

REACTIONS (16)
  - BLOOD CALCIUM DECREASED [None]
  - BLOOD CHLORIDE DECREASED [None]
  - BLOOD CREATINE INCREASED [None]
  - BLOOD GLUCOSE INCREASED [None]
  - BLOOD SODIUM DECREASED [None]
  - BLOOD UREA INCREASED [None]
  - CARDIAC FAILURE CONGESTIVE [None]
  - CONDITION AGGRAVATED [None]
  - DIALYSIS [None]
  - EATING DISORDER [None]
  - GAIT DISTURBANCE [None]
  - HAEMATOCRIT DECREASED [None]
  - HAEMOGLOBIN DECREASED [None]
  - MUSCLE SPASMS [None]
  - MYOCLONUS [None]
  - TREMOR [None]
